FAERS Safety Report 15797697 (Version 3)
Quarter: 2019Q3

REPORT INFORMATION
  Report Type: Spontaneous
  Country: US (occurrence: US)
  Receive Date: 20190108
  Receipt Date: 20190812
  Transmission Date: 20191004
  Serious: No
  Sender: FDA-Public Use
  Company Number: US-MYLANLABS-2018M1094379

PATIENT
  Sex: Female
  Weight: 122 kg

DRUGS (2)
  1. HYALURONIC ACID [Concomitant]
     Active Substance: HYALURONIC ACID
  2. LEVOTHYROXINE SODIUM TABLETS, USP [Suspect]
     Active Substance: LEVOTHYROXINE SODIUM
     Indication: THYROID DISORDER
     Dosage: 100 UNK
     Route: 048

REACTIONS (1)
  - Therapeutic product effect decreased [Not Recovered/Not Resolved]
